FAERS Safety Report 14279940 (Version 2)
Quarter: 2018Q2

REPORT INFORMATION
  Report Type: Report from Study
  Country: AU (occurrence: AU)
  Receive Date: 20171213
  Receipt Date: 20180406
  Transmission Date: 20180711
  Serious: Yes (Hospitalization)
  Sender: FDA-Public Use
  Company Number: AU-ROCHE-2039254

PATIENT
  Age: 82 Year
  Sex: Male
  Weight: 76.8 kg

DRUGS (4)
  1. AFLIBERCEPT [Suspect]
     Active Substance: AFLIBERCEPT
     Indication: NEOVASCULAR AGE-RELATED MACULAR DEGENERATION
     Dosage: 2 MG, (RIGHT EYE)
     Route: 031
     Dates: start: 20150121
  2. AFLIBERCEPT [Suspect]
     Active Substance: AFLIBERCEPT
     Dosage: 2 MG (RIGHT EYE)
     Route: 031
     Dates: start: 20170222
  3. AFLIBERCEPT [Suspect]
     Active Substance: AFLIBERCEPT
     Dosage: 2 MG, (RIGHT EYE)
     Route: 031
     Dates: start: 20161207
  4. AMLO [Concomitant]
     Indication: HYPERTENSION
     Dosage: 10 MG, UNK
     Route: 065
     Dates: start: 20050310

REACTIONS (3)
  - Abdominal abscess [Recovered/Resolved]
  - Hypotension [Recovered/Resolved]
  - Pulmonary embolism [Recovered/Resolved]

NARRATIVE: CASE EVENT DATE: 20161228
